FAERS Safety Report 19644144 (Version 1)
Quarter: 2021Q3

REPORT INFORMATION
  Report Type: Spontaneous
  Country: FR (occurrence: FR)
  Receive Date: 20210731
  Receipt Date: 20210731
  Transmission Date: 20211014
  Serious: Yes (Other)
  Sender: FDA-Public Use
  Company Number: FR-AUROBINDO-AUR-APL-2021-032721

PATIENT
  Age: 29 Year

DRUGS (1)
  1. EFAVIRENZ+EMTRICITABINE+TENOFOVIR FILM  COATED TABLETS [Suspect]
     Active Substance: EFAVIRENZ\EMTRICITABINE\TENOFOVIR DISOPROXIL FUMARATE
     Indication: PRODUCT USED FOR UNKNOWN INDICATION
     Dosage: UNK
     Route: 065
     Dates: start: 202012

REACTIONS (5)
  - Drug ineffective [Unknown]
  - Depression [Unknown]
  - Psychiatric symptom [Unknown]
  - Viral load increased [Unknown]
  - Negative thoughts [Unknown]
